FAERS Safety Report 14192606 (Version 1)
Quarter: 2017Q4

REPORT INFORMATION
  Report Type: Spontaneous
  Country: US (occurrence: US)
  Receive Date: 20171115
  Receipt Date: 20171115
  Transmission Date: 20180321
  Serious: No
  Sender: FDA-Public Use
  Company Number: US-FRESENIUS KABI-FK201709863

PATIENT
  Sex: Female

DRUGS (1)
  1. MORPHINE SULFATE INJECTION, USP [Suspect]
     Active Substance: MORPHINE SULFATE
     Indication: PAIN
     Route: 042
     Dates: start: 20171108

REACTIONS (3)
  - Rubber sensitivity [None]
  - Injection site rash [Recovered/Resolved]
  - Injection site erythema [Recovered/Resolved]
